FAERS Safety Report 15596662 (Version 5)
Quarter: 2019Q2

REPORT INFORMATION
  Report Type: Report from Study
  Country: DE (occurrence: DE)
  Receive Date: 20181108
  Receipt Date: 20190625
  Transmission Date: 20190711
  Serious: Yes (Other)
  Sender: FDA-Public Use
  Company Number: DE-ROCHE-2111845

PATIENT
  Age: 29 Year
  Sex: Female

DRUGS (9)
  1. OCREVUS [Suspect]
     Active Substance: OCRELIZUMAB
     Route: 042
     Dates: start: 20180426
  2. CORTISONE [Suspect]
     Active Substance: CORTISONE\HYDROCORTISONE
     Indication: PRODUCT USED FOR UNKNOWN INDICATION
     Route: 065
  3. OCREVUS [Suspect]
     Active Substance: OCRELIZUMAB
     Indication: RELAPSING-REMITTING MULTIPLE SCLEROSIS
     Route: 042
     Dates: start: 20180412
  4. OCREVUS [Suspect]
     Active Substance: OCRELIZUMAB
     Route: 042
     Dates: start: 20181112
  5. EMSELEX [DARIFENACIN] [Concomitant]
  6. L-THYROXIN [LEVOTHYROXINE] [Concomitant]
     Active Substance: LEVOTHYROXINE SODIUM
     Indication: PRODUCT USED FOR UNKNOWN INDICATION
     Route: 065
  7. IBUPROFEN. [Concomitant]
     Active Substance: IBUPROFEN
     Route: 065
     Dates: start: 20181112
  8. IBUPROFEN. [Concomitant]
     Active Substance: IBUPROFEN
     Route: 065
     Dates: start: 20181112
  9. OCREVUS [Suspect]
     Active Substance: OCRELIZUMAB
     Dosage: 4TH INFUSION
     Route: 042
     Dates: start: 20190603

REACTIONS (17)
  - Hyperaesthesia [Recovered/Resolved]
  - Oral discomfort [Recovered/Resolved]
  - Fatigue [Recovered/Resolved]
  - Body temperature increased [Recovered/Resolved]
  - Inappropriate schedule of product administration [Unknown]
  - Paraesthesia [Recovered/Resolved]
  - Stress [Not Recovered/Not Resolved]
  - Oral mucosal blistering [Recovered/Resolved]
  - Hypoaesthesia [Not Recovered/Not Resolved]
  - Sensitivity to weather change [Unknown]
  - Nuclear magnetic resonance imaging brain abnormal [Unknown]
  - Headache [Recovered/Resolved]
  - Nausea [Recovered/Resolved]
  - Vomiting [Recovered/Resolved]
  - Pruritus generalised [Recovered/Resolved]
  - Muscular weakness [Recovered/Resolved]
  - Nasopharyngitis [Recovered/Resolved]

NARRATIVE: CASE EVENT DATE: 20180412
